FAERS Safety Report 4740775-5 (Version None)
Quarter: 2005Q3

REPORT INFORMATION
  Report Type: 
  Country: None (occurrence: None)
  Receive Date: 20050804
  Receipt Date: 20050419
  Transmission Date: 20060218
  Serious: No
  Sender: FDA-Public Use
  Company Number: FACT0500332

PATIENT
  Age: 60 Year
  Sex: Female
  Weight: 59.9 kg

DRUGS (6)
  1. FACTIVE [Suspect]
     Indication: RESPIRATORY TRACT INFECTION BACTERIAL
     Dosage: 320MG, QD, ORAL
     Route: 048
     Dates: start: 20050401, end: 20050414
  2. FOSAMAX [Concomitant]
  3. NORVASC   /DEN/  (AMLODIPINE BESILATE) [Concomitant]
  4. ZOCOR [Concomitant]
  5. TUSSIBID (GUAIFENESIN) [Concomitant]
  6. ASPIRIN [Concomitant]

REACTIONS (2)
  - DRUG INEFFECTIVE [None]
  - RASH PAPULAR [None]
